FAERS Safety Report 20040756 (Version 1)
Quarter: 2021Q4

REPORT INFORMATION
  Report Type: Spontaneous
  Country: US (occurrence: None)
  Receive Date: 20211108
  Receipt Date: 20211108
  Transmission Date: 20220303
  Serious: Yes (Hospitalization)
  Sender: FDA-Public Use
  Company Number: None

PATIENT
  Sex: Male

DRUGS (1)
  1. HUMIRA [Suspect]
     Active Substance: ADALIMUMAB
     Indication: Colitis ulcerative
     Dosage: FREQUENCY : WEEKLY; 1 PEN?
     Route: 058
     Dates: start: 20210424

REACTIONS (3)
  - Colitis ulcerative [None]
  - Loss of personal independence in daily activities [None]
  - Therapy interrupted [None]
